FAERS Safety Report 5237848-X (Version None)
Quarter: 2007Q1

REPORT INFORMATION
  Report Type: 
  Country: None (occurrence: None)
  Receive Date: 20070214
  Receipt Date: 20070209
  Transmission Date: 20070707
  Serious: Yes (Life-Threatening, Hospitalization)
  Sender: FDA-Public Use
  Company Number: PHFR2007GB00745

PATIENT
  Age: 40 Year
  Sex: Female

DRUGS (2)
  1. CLOZAPINE [Suspect]
     Dosage: 125 MG, BID
     Route: 048
     Dates: start: 20061009, end: 20061106
  2. OLANZAPINE [Suspect]
     Route: 065

REACTIONS (12)
  - CONSTIPATION [None]
  - DIARRHOEA [None]
  - HYPOALBUMINAEMIA [None]
  - LEUKOCYTOSIS [None]
  - NASOPHARYNGITIS [None]
  - NEUTROPHILIA [None]
  - PERICARDIAL EFFUSION [None]
  - PLEURAL EFFUSION [None]
  - PYREXIA [None]
  - UPPER RESPIRATORY TRACT INFECTION [None]
  - VOMITING [None]
  - WHITE BLOOD CELL COUNT INCREASED [None]
